FAERS Safety Report 12845578 (Version 3)
Quarter: 2021Q3

REPORT INFORMATION
  Report Type: Spontaneous
  Country: US (occurrence: US)
  Receive Date: 20161013
  Receipt Date: 20210817
  Transmission Date: 20211014
  Serious: No
  Sender: FDA-Public Use
  Company Number: US-JAZZ-2016-US-013547

PATIENT
  Sex: Female

DRUGS (34)
  1. BUTRANS [Concomitant]
     Active Substance: BUPRENORPHINE
  2. LORAZEPAM. [Concomitant]
     Active Substance: LORAZEPAM
  3. TRAMADOL HCL [Concomitant]
     Active Substance: TRAMADOL HYDROCHLORIDE
  4. ERGOCALCIFEROL. [Concomitant]
     Active Substance: ERGOCALCIFEROL
  5. MELATONIN [Concomitant]
     Active Substance: MELATONIN
  6. CYANOCOBALAMIN. [Concomitant]
     Active Substance: CYANOCOBALAMIN
  7. SINGULAIR [Concomitant]
     Active Substance: MONTELUKAST SODIUM
  8. GABAPENTIN. [Concomitant]
     Active Substance: GABAPENTIN
  9. XYREM [Suspect]
     Active Substance: SODIUM OXYBATE
     Dosage: DOSE ADJUSTMENTS
     Route: 048
     Dates: start: 201511, end: 201602
  10. FLURANDRENOLIDE. [Concomitant]
     Active Substance: FLURANDRENOLIDE
  11. BUPROPION HYDROCHLORIDE. [Concomitant]
     Active Substance: BUPROPION HYDROCHLORIDE
  12. ACETYLSALICYLIC ACID [Concomitant]
     Active Substance: ASPIRIN
  13. LORATADINE. [Concomitant]
     Active Substance: LORATADINE
  14. PRAMIPEXOLE DIHYDROCHLORIDE. [Concomitant]
     Active Substance: PRAMIPEXOLE DIHYDROCHLORIDE
  15. TOPAMAX [Concomitant]
     Active Substance: TOPIRAMATE
  16. ASCORBIC ACID. [Concomitant]
     Active Substance: ASCORBIC ACID
  17. FLUTICASONE PROPIONATE. [Concomitant]
     Active Substance: FLUTICASONE PROPIONATE
  18. METHOCARBAMOL. [Concomitant]
     Active Substance: METHOCARBAMOL
  19. CELECOXIB. [Concomitant]
     Active Substance: CELECOXIB
  20. XYREM [Suspect]
     Active Substance: SODIUM OXYBATE
     Dosage: 4.5 G, BID
     Route: 048
     Dates: start: 201602
  21. ONDANSETRON HYDROCHLORIDE. [Concomitant]
     Active Substance: ONDANSETRON HYDROCHLORIDE
  22. XYREM [Suspect]
     Active Substance: SODIUM OXYBATE
     Indication: NARCOLEPSY
     Dosage: 1.5 G, BID
     Route: 048
     Dates: start: 201510, end: 201511
  23. SUMATRIPTAN SUCCINATE. [Concomitant]
     Active Substance: SUMATRIPTAN SUCCINATE
  24. FERROUS SULFATE. [Concomitant]
     Active Substance: FERROUS SULFATE
  25. FLUOXETINE HYDROCHLORIDE. [Concomitant]
     Active Substance: FLUOXETINE HYDROCHLORIDE
  26. SYNTHROID [Concomitant]
     Active Substance: LEVOTHYROXINE SODIUM
  27. CEFALEXIN [Concomitant]
     Active Substance: CEPHALEXIN
  28. NUVIGIL [Concomitant]
     Active Substance: ARMODAFINIL
  29. NYSTATIN. [Concomitant]
     Active Substance: NYSTATIN
  30. MODAFINIL. [Concomitant]
     Active Substance: MODAFINIL
  31. OMEPRAZOLE. [Concomitant]
     Active Substance: OMEPRAZOLE
  32. KETOCONAZOLE. [Concomitant]
     Active Substance: KETOCONAZOLE
  33. DOCUSATE SODIUM. [Concomitant]
     Active Substance: DOCUSATE SODIUM
  34. FOLIC ACID. [Concomitant]
     Active Substance: FOLIC ACID

REACTIONS (6)
  - Nausea [Unknown]
  - Pre-existing condition improved [Unknown]
  - Therapeutic response unexpected [Unknown]
  - Fluid retention [Unknown]
  - Fungal infection [Unknown]
  - Hypertension [Recovered/Resolved]

NARRATIVE: CASE EVENT DATE: 2015
